FAERS Safety Report 9921448 (Version 2)
Quarter: 2014Q2

REPORT INFORMATION
  Report Type: Spontaneous
  Country: JP (occurrence: JP)
  Receive Date: 20140225
  Receipt Date: 20140616
  Transmission Date: 20141212
  Serious: Yes (Other)
  Sender: FDA-Public Use
  Company Number: JP-ELI_LILLY_AND_COMPANY-JP201402005958

PATIENT
  Age: 70 Year
  Sex: Female

DRUGS (18)
  1. FORTEO [Suspect]
     Indication: OSTEOPOROSIS
     Dosage: 20 UG, QD
     Route: 058
     Dates: start: 20131106, end: 20140228
  2. BIOFERMIN                          /00275501/ [Concomitant]
     Dosage: 1 G, TID
     Route: 048
  3. DESYREL [Concomitant]
     Route: 048
  4. HALCION [Concomitant]
     Dosage: UNK
     Route: 048
  5. QUETIAPINE [Concomitant]
     Route: 048
  6. JUVELA N [Concomitant]
     Dosage: 200 MG, TID
     Route: 048
  7. CALTAN [Concomitant]
     Dosage: 500 MG, TID
     Route: 048
  8. CALTAN [Concomitant]
     Dosage: 1000 MG, TID
     Route: 048
  9. REBAMIPIDE [Concomitant]
     Dosage: 100 MG, BID
     Route: 048
  10. AMLODIPINE                         /00972402/ [Concomitant]
     Dosage: 5 MG, EACH EVENING
     Route: 048
  11. ARTIST [Concomitant]
     Dosage: 20 MG, EACH MORNING
     Route: 048
  12. THYRADIN S [Concomitant]
     Dosage: 150 UG, EACH MORNING
     Route: 048
  13. SELBEX [Concomitant]
     Dosage: 50 MG, TID
     Route: 048
  14. CLARITH [Concomitant]
     Dosage: 100 MG, EACH EVENING
     Route: 048
  15. MUCODYNE [Concomitant]
     Dosage: 500 MG, BID
     Route: 048
  16. LOXOPROFEN SODIUM [Concomitant]
     Dosage: 60 MG, BID
     Route: 048
  17. LOXOPROFEN SODIUM [Concomitant]
     Dosage: 60 MG, PRN
     Route: 048
  18. DOXAZOSIN MESILATE [Concomitant]
     Dosage: 1 MG, PRN
     Route: 048

REACTIONS (2)
  - Hypocalcaemia [Recovered/Resolved]
  - Off label use [Recovered/Resolved]
